FAERS Safety Report 7550629-7 (Version None)
Quarter: 2011Q2

REPORT INFORMATION
  Report Type: 
  Country: None (occurrence: None)
  Receive Date: 20110616
  Receipt Date: 20110523
  Transmission Date: 20111010
  Serious: Yes (Death)
  Sender: FDA-Public Use
  Company Number: JP-SHIRE-SPV1-2011-00483

PATIENT
  Age: 57 Year
  Sex: Female

DRUGS (10)
  1. LOXONIN [Suspect]
     Indication: MUSCULOSKELETAL PAIN
     Dosage: 180 MG, 1X/DAY:QD
     Route: 048
     Dates: start: 20110314, end: 20110320
  2. DIOVAN [Concomitant]
     Indication: PRODUCT USED FOR UNKNOWN INDICATION
     Dosage: 40 MG, UNKNOWN
     Route: 048
     Dates: start: 20051219, end: 20110320
  3. KREMEZIN [Concomitant]
     Indication: PRODUCT USED FOR UNKNOWN INDICATION
     Dosage: UNK, UNKNOWN
     Route: 048
  4. OMEPRAZOLE [Suspect]
     Indication: PROPHYLAXIS AGAINST GASTROINTESTINAL ULCER
     Dosage: 20 MG 1X/DAY:QD
     Route: 048
     Dates: start: 20110314, end: 20110320
  5. ALFAROL [Concomitant]
     Indication: PRODUCT USED FOR UNKNOWN INDICATION
     Dosage: 0.25 UG, UNKNOWN
     Route: 048
     Dates: start: 20100331, end: 20110317
  6. THYRADIN [Concomitant]
     Indication: PRODUCT USED FOR UNKNOWN INDICATION
     Dosage: 100 UG, UNKNOWN
     Route: 048
     Dates: start: 20041122, end: 20110320
  7. CYTOTEC [Suspect]
     Indication: PROPHYLAXIS AGAINST GASTROINTESTINAL ULCER
     Dosage: 600 UG; 1X/DAY:QD
     Route: 048
     Dates: start: 20110314, end: 20110320
  8. ALLOPURINOL [Concomitant]
     Indication: PRODUCT USED FOR UNKNOWN INDICATION
     Dosage: 100 MG, UNKNOWN
     Route: 048
     Dates: start: 20100331, end: 20110320
  9. FOSRENOL [Suspect]
     Indication: HYPERPHOSPHATAEMIA
     Dosage: 750 MG, 1X/DAY:QD
     Route: 048
     Dates: start: 20110309, end: 20110320
  10. CALBLOCK [Concomitant]
     Indication: PRODUCT USED FOR UNKNOWN INDICATION
     Dosage: 16 MG, UNKNOWN
     Route: 048
     Dates: start: 20041122, end: 20110320

REACTIONS (2)
  - PERITONITIS [None]
  - RECTAL PERFORATION [None]
